FAERS Safety Report 8838150 (Version 1)
Quarter: 2012Q4

REPORT INFORMATION
  Report Type: 
  Country: DE (occurrence: GB)
  Receive Date: 20121012
  Receipt Date: 20121012
  Transmission Date: 20130627
  Serious: Yes (Hospitalization)
  Sender: FDA-Public Use
  Company Number: GB-BRISTOL-MYERS SQUIBB COMPANY-17028689

PATIENT
  Age: 76 Year
  Sex: Female
  Weight: 80 kg

DRUGS (8)
  1. ERBITUX [Suspect]
     Indication: COLON CANCER METASTATIC
     Route: 042
     Dates: start: 20120917, end: 20120917
  2. 5-FLUOROURACIL [Concomitant]
  3. CALCICHEW D3 [Concomitant]
     Dosage: Powder form
  4. CO-CODAMOL [Concomitant]
  5. DEXAMETHASONE [Concomitant]
  6. DOMPERIDONE [Concomitant]
  7. EXEMESTANE [Concomitant]
  8. OXALIPLATIN [Concomitant]

REACTIONS (1)
  - Atrial fibrillation [Recovered/Resolved with Sequelae]
